FAERS Safety Report 8426908 (Version 3)
Quarter: 2014Q1

REPORT INFORMATION
  Report Type: Spontaneous
  Country: US (occurrence: US)
  Receive Date: 20120227
  Receipt Date: 20140128
  Transmission Date: 20141002
  Serious: Yes (Hospitalization)
  Sender: FDA-Public Use
  Company Number: US-BAYER-2012-018056

PATIENT
  Age: 21 Year
  Sex: Female
  Weight: 77.1 kg

DRUGS (20)
  1. YAZ [Suspect]
     Indication: ACNE
     Dosage: UNK
     Dates: start: 20070607, end: 20090630
  2. YASMIN [Suspect]
     Indication: ACNE
     Dosage: UNK
     Dates: start: 20061113, end: 20070607
  3. YASMIN [Suspect]
     Indication: CONTRACEPTION
  4. DORYX [Concomitant]
  5. CEFDINIR [Concomitant]
  6. AMOXICILLIN [Concomitant]
  7. METOPROLOL [Concomitant]
  8. SPIRONOLACTONE [Concomitant]
  9. ROCEPHIN [Concomitant]
  10. METFORMIN [Concomitant]
  11. BETAPACE [Concomitant]
  12. DILTIAZEM [Concomitant]
     Dosage: 180 MG,PER DAY
     Dates: start: 20100806
  13. IBUPROFEN [Concomitant]
     Indication: CHEST DISCOMFORT
     Dosage: 800 MG, Q8 (INTERPRETED AS EVERY 8) HOURS AS NEEDED
     Dates: start: 20100806
  14. ISOPRENALINE [Concomitant]
     Dosage: 151.50MCG
     Dates: start: 20100806
  15. ANCEF [Concomitant]
     Dosage: 1 G, UNK
     Dates: start: 20100806
  16. LOESTRIN [Concomitant]
     Dosage: UNK
  17. LOPRESSOR [Concomitant]
     Dosage: UNK
  18. ALDACTONE A [Concomitant]
     Dosage: UNK
  19. SALT [Concomitant]
     Dosage: UNK
  20. ADENOSINE [Concomitant]
     Dosage: UNK

REACTIONS (4)
  - Arrhythmia [None]
  - Supraventricular tachycardia [None]
  - Gallbladder disorder [None]
  - Cholecystitis acute [None]
